FAERS Safety Report 7353210-8 (Version None)
Quarter: 2011Q1

REPORT INFORMATION
  Report Type: 
  Country: None (occurrence: None)
  Receive Date: 20110310
  Receipt Date: 20110310
  Transmission Date: 20110831
  Serious: No
  Sender: FDA-Public Use
  Company Number: None

PATIENT
  Sex: Male
  Weight: 82.1011 kg

DRUGS (1)
  1. XENAZINE [Suspect]
     Indication: HUNTINGTON'S DISEASE
     Dosage: 12.5MG BID PO
     Route: 048
     Dates: start: 20110223, end: 20110308

REACTIONS (3)
  - TREMOR [None]
  - TORTICOLLIS [None]
  - MUSCLE RIGIDITY [None]
